FAERS Safety Report 10185070 (Version 2)
Quarter: 2014Q2

REPORT INFORMATION
  Report Type: Spontaneous
  Country: US (occurrence: US)
  Receive Date: 20140521
  Receipt Date: 20140619
  Transmission Date: 20141212
  Serious: No
  Sender: FDA-Public Use
  Company Number: US-009507513-1405USA008422

PATIENT
  Age: 77 Year
  Sex: Female
  Weight: 57.14 kg

DRUGS (9)
  1. OXYTROL FOR WOMEN [Suspect]
     Indication: INCONTINENCE
     Dosage: 1 DF, Q4D
     Route: 062
     Dates: start: 20140428, end: 20140505
  2. METFORMIN [Concomitant]
     Indication: DIABETES MELLITUS
     Dosage: UNK, BID
  3. METOPROLOL [Concomitant]
     Indication: ATRIAL FIBRILLATION
     Dosage: UNK, UNKNOWN
  4. SYNTHROID [Concomitant]
     Indication: THYROID DISORDER
     Dosage: 75 MICROGRAM, QAM
  5. LASIX (FUROSEMIDE) [Concomitant]
     Indication: PRODUCT USED FOR UNKNOWN INDICATION
     Dosage: 20 MG, QD
  6. CLONAZEPAM [Concomitant]
     Indication: ANXIETY
     Dosage: UNK, PRN
  7. SIMVASTATIN [Concomitant]
     Indication: PRODUCT USED FOR UNKNOWN INDICATION
     Dosage: 20 MG, QPM
  8. RANITIDINE [Concomitant]
     Indication: PRODUCT USED FOR UNKNOWN INDICATION
     Dosage: 150 MG, BID
  9. COZAAR [Concomitant]
     Indication: BLOOD PRESSURE
     Dosage: UNK UNK, UNKNOWN

REACTIONS (6)
  - Rash [Recovered/Resolved]
  - Application site papules [Recovered/Resolved]
  - Wound secretion [Recovered/Resolved]
  - Application site erythema [Recovering/Resolving]
  - Drug effect decreased [Unknown]
  - Off label use [Unknown]
